FAERS Safety Report 8430659-3 (Version None)
Quarter: 2012Q2

REPORT INFORMATION
  Report Type: 
  Country: None (occurrence: None)
  Receive Date: 20120606
  Receipt Date: 20120606
  Transmission Date: 20120825
  Serious: Yes (Hospitalization)
  Sender: FDA-Public Use
  Company Number: None

PATIENT
  Sex: Male
  Weight: 79 kg

DRUGS (1)
  1. TELAPREVIR 375 MG [Suspect]
     Indication: HEPATITIS C
     Dosage: 750 MG TID PO
     Route: 048

REACTIONS (6)
  - NEUTROPENIA [None]
  - RASH [None]
  - SWELLING FACE [None]
  - AURICULAR SWELLING [None]
  - OEDEMA MOUTH [None]
  - EYE SWELLING [None]
